FAERS Safety Report 6129041-3 (Version None)
Quarter: 2009Q1

REPORT INFORMATION
  Report Type: 
  Country: None (occurrence: None)
  Receive Date: 20090324
  Receipt Date: 20090323
  Transmission Date: 20090719
  Serious: Yes (Death)
  Sender: FDA-Public Use
  Company Number: DE-JNJFOC-20090305440

PATIENT
  Age: 70 Year
  Sex: Male

DRUGS (2)
  1. TAVANIC [Suspect]
     Indication: BRONCHOPNEUMONIA
     Route: 048
  2. PROSPAN [Concomitant]
     Route: 048

REACTIONS (1)
  - SUDDEN DEATH [None]
